FAERS Safety Report 15900864 (Version 1)
Quarter: 2019Q1

REPORT INFORMATION
  Report Type: Spontaneous
  Country: UY (occurrence: UY)
  Receive Date: 20190201
  Receipt Date: 20190201
  Transmission Date: 20190417
  Serious: Yes (Other)
  Sender: FDA-Public Use
  Company Number: UY-BAYER-2019-021185

PATIENT
  Age: 63 Year
  Sex: Female

DRUGS (1)
  1. STIVARGA [Suspect]
     Active Substance: REGORAFENIB
     Indication: COLON CANCER
     Dosage: UNK
     Dates: start: 201901

REACTIONS (2)
  - Gait inability [None]
  - Skin irritation [Unknown]

NARRATIVE: CASE EVENT DATE: 2019
